FAERS Safety Report 12076909 (Version 1)
Quarter: 2016Q1

REPORT INFORMATION
  Report Type: Spontaneous
  Country: US (occurrence: US)
  Receive Date: 20160215
  Receipt Date: 20160215
  Transmission Date: 20160526
  Serious: Yes (Life-Threatening, Hospitalization)
  Sender: FDA-Public Use
  Company Number: CHPA2016US001626

PATIENT
  Age: 47 Year
  Sex: Female

DRUGS (1)
  1. ACETYLSALICYLIC ACID [Suspect]
     Active Substance: ASPIRIN
     Indication: PRODUCT USED FOR UNKNOWN INDICATION
     Route: 048

REACTIONS (18)
  - Toxicity to various agents [Recovering/Resolving]
  - Metabolic alkalosis [Recovering/Resolving]
  - Nausea [Recovering/Resolving]
  - Anxiety [Recovering/Resolving]
  - Respiratory alkalosis [Recovering/Resolving]
  - Dizziness [Recovering/Resolving]
  - Dyspnoea [Recovering/Resolving]
  - Palpitations [Recovering/Resolving]
  - Hypoacusis [Recovering/Resolving]
  - Hypotension [Recovering/Resolving]
  - Vomiting [Recovering/Resolving]
  - Suicide attempt [Recovering/Resolving]
  - Heart rate increased [Recovering/Resolving]
  - Confusional state [Recovering/Resolving]
  - Metabolic acidosis [Recovering/Resolving]
  - Tachypnoea [Recovering/Resolving]
  - Tinnitus [Recovering/Resolving]
  - Somnolence [Recovering/Resolving]
